FAERS Safety Report 17091877 (Version 1)
Quarter: 2019Q4

REPORT INFORMATION
  Report Type: Spontaneous
  Country: US (occurrence: US)
  Receive Date: 20191101
  Receipt Date: 20191101
  Transmission Date: 20200122
  Serious: Yes (Hospitalization)
  Sender: FDA-Public Use
  Company Number: None

PATIENT
  Age: 49 Year

DRUGS (7)
  1. AZATHIOPRINE. [Concomitant]
     Active Substance: AZATHIOPRINE
  2. VITAMIN B12 [Concomitant]
     Active Substance: CYANOCOBALAMIN
  3. MULTI VITAMINS [Concomitant]
     Active Substance: VITAMINS
  4. DAILY [Concomitant]
     Active Substance: ETHINYL ESTRADIOL\LEVONORGESTREL
  5. OMEPRAZOLE. [Concomitant]
     Active Substance: OMEPRAZOLE
  6. BUDESONIDE. [Concomitant]
     Active Substance: BUDESONIDE
  7. STELARA [Suspect]
     Active Substance: USTEKINUMAB
     Indication: CROHN^S DISEASE
     Dosage: ?          OTHER FREQUENCY:Q6WKS ;?
     Route: 058
     Dates: start: 20170321

REACTIONS (2)
  - Crohn^s disease [None]
  - Hypersensitivity [None]

NARRATIVE: CASE EVENT DATE: 20190919
